FAERS Safety Report 5139029-7 (Version None)
Quarter: 2006Q4

REPORT INFORMATION
  Report Type: 
  Country: None (occurrence: None)
  Receive Date: 20061030
  Receipt Date: 20060609
  Transmission Date: 20070319
  Serious: No
  Sender: FDA-Public Use
  Company Number: US-GLAXOSMITHKLINE-A0608494A

PATIENT
  Age: 74 Year
  Sex: Female

DRUGS (12)
  1. ADVAIR HFA [Suspect]
     Indication: ASTHMA
     Dosage: 1PUFF TWICE PER DAY
     Route: 055
  2. FUROSEMIDE [Concomitant]
  3. EFFEXOR XR [Concomitant]
  4. COREG [Concomitant]
  5. CALCIUM GLUCONATE [Concomitant]
  6. ZOCOR [Concomitant]
  7. ZYPREXA [Concomitant]
  8. KLOR-CON [Concomitant]
  9. NORVASC [Concomitant]
  10. SPIRONOLACTONE [Concomitant]
  11. LAMICTAL [Concomitant]
  12. VITAMIN [Concomitant]

REACTIONS (3)
  - DRUG INEFFECTIVE [None]
  - OVERDOSE [None]
  - PHARMACEUTICAL PRODUCT COMPLAINT [None]
